FAERS Safety Report 6819521-7 (Version None)
Quarter: 2010Q3

REPORT INFORMATION
  Report Type: 
  Country: None (occurrence: None)
  Receive Date: 20100707
  Receipt Date: 20100625
  Transmission Date: 20110219
  Serious: Yes (Other)
  Sender: FDA-Public Use
  Company Number: PHFR2010GB01148

PATIENT
  Age: 75 Year
  Sex: Female

DRUGS (6)
  1. CARBAMAZEPINE [Suspect]
     Indication: NEURALGIA
     Dosage: 100 MG, QD
     Route: 048
     Dates: start: 20100608
  2. DIHYDROCODEINE BITARTRATE INJ [Concomitant]
  3. OMEPRAZOLE [Concomitant]
     Route: 048
  4. QUININE [Concomitant]
  5. RISEDRONIC ACID [Concomitant]
     Route: 048
  6. ZOPICLONE [Concomitant]
     Route: 048

REACTIONS (2)
  - BLOOD DISORDER [None]
  - RASH GENERALISED [None]
